FAERS Safety Report 6698666-9 (Version None)
Quarter: 2010Q2

REPORT INFORMATION
  Report Type: 
  Country: None (occurrence: None)
  Receive Date: 20100427
  Receipt Date: 20100414
  Transmission Date: 20101027
  Serious: Yes (Hospitalization)
  Sender: FDA-Public Use
  Company Number: PHHY2010FR23944

PATIENT
  Age: 73 Year
  Sex: Female

DRUGS (2)
  1. TEGRETOL [Suspect]
     Indication: EPILEPSY
     Dosage: UNK
     Dates: end: 20100224
  2. DIGOXIN [Concomitant]
     Indication: ARRHYTHMIA SUPRAVENTRICULAR

REACTIONS (5)
  - CARDIAC ARREST [None]
  - CEREBRAL HYPOPERFUSION [None]
  - DYSARTHRIA [None]
  - FACIAL PALSY [None]
  - MONOPLEGIA [None]
